FAERS Safety Report 5349899-5 (Version None)
Quarter: 2007Q2

REPORT INFORMATION
  Report Type: 
  Country: None (occurrence: None)
  Receive Date: 20070607
  Receipt Date: 20070523
  Transmission Date: 20071010
  Serious: Yes (Hospitalization, Other)
  Sender: FDA-Public Use
  Company Number: US-PFIZER INC-2006081151

PATIENT
  Sex: Female
  Weight: 89.8 kg

DRUGS (1)
  1. BEXTRA [Suspect]
     Indication: ARTHRITIS
     Dosage: TEXT:10MG AND/OR 20MG
     Route: 048

REACTIONS (1)
  - CEREBROVASCULAR ACCIDENT [None]
